FAERS Safety Report 24345972 (Version 2)
Quarter: 2024Q4

REPORT INFORMATION
  Report Type: Report from Study
  Country: CA (occurrence: CA)
  Receive Date: 20240920
  Receipt Date: 20241013
  Transmission Date: 20250115
  Serious: Yes (Other)
  Sender: ABBVIE
  Company Number: CA-ABBVIE-5843171

PATIENT
  Age: 57 Year
  Sex: Female

DRUGS (2)
  1. RINVOQ [Suspect]
     Active Substance: UPADACITINIB
     Indication: Crohn^s disease
     Dosage: FORM STRENGTH: 30 MILLIGRAM
     Route: 048
     Dates: start: 20240430
  2. RINVOQ [Suspect]
     Active Substance: UPADACITINIB
     Indication: Crohn^s disease
     Route: 048

REACTIONS (17)
  - Fistula discharge [Not Recovered/Not Resolved]
  - Alopecia [Unknown]
  - Acne [Unknown]
  - Rash [Unknown]
  - Skin ulcer [Unknown]
  - Anal fistula [Not Recovered/Not Resolved]
  - Sensitive skin [Unknown]
  - Contusion [Not Recovered/Not Resolved]
  - Skin disorder [Unknown]
  - Diarrhoea [Unknown]
  - Constipation [Not Recovered/Not Resolved]
  - Back pain [Unknown]
  - Renal pain [Unknown]
  - Inflammation [Unknown]
  - Intestinal mass [Unknown]
  - Haematochezia [Unknown]
  - Anorectal discomfort [Unknown]

NARRATIVE: CASE EVENT DATE: 20240101
